FAERS Safety Report 8536643 (Version 8)
Quarter: 2013Q3

REPORT INFORMATION
  Report Type: Report from Study
  Country: CA (occurrence: CA)
  Receive Date: 20120430
  Receipt Date: 20130826
  Transmission Date: 20140515
  Serious: Yes (Hospitalization)
  Sender: FDA-Public Use
  Company Number: CA-ROCHE-1062603

PATIENT
  Age: 58 Year
  Sex: Male
  Weight: 89.5 kg

DRUGS (9)
  1. ACTEMRA [Suspect]
     Indication: RHEUMATOID ARTHRITIS
     Route: 042
     Dates: start: 20120404
  2. ACTEMRA [Suspect]
     Route: 042
     Dates: start: 20130328
  3. LIPITOR [Concomitant]
  4. MICARDIS [Concomitant]
  5. ELATROL [Concomitant]
  6. ASA [Concomitant]
  7. INSULIN [Concomitant]
     Indication: DIABETES MELLITUS
  8. RABEPRAZOLE [Concomitant]
  9. PIOGLITAZONE [Concomitant]

REACTIONS (11)
  - Keratitis [Unknown]
  - Blindness [Recovering/Resolving]
  - Pain [Recovering/Resolving]
  - Blood glucose increased [Recovered/Resolved]
  - Weight increased [Recovered/Resolved]
  - Arthralgia [Not Recovered/Not Resolved]
  - Weight decreased [Not Recovered/Not Resolved]
  - Paraesthesia [Recovering/Resolving]
  - Hypoaesthesia [Recovering/Resolving]
  - Musculoskeletal pain [Recovering/Resolving]
  - Drug effect decreased [Unknown]
